FAERS Safety Report 4773367-2 (Version None)
Quarter: 2005Q3

REPORT INFORMATION
  Report Type: 
  Country: None (occurrence: None)
  Receive Date: 20050916
  Receipt Date: 20050831
  Transmission Date: 20060218
  Serious: Yes (Other)
  Sender: FDA-Public Use
  Company Number: 310805003/238 AE

PATIENT
  Age: 3 Year
  Sex: Female

DRUGS (1)
  1. TESTIM [Suspect]
     Dosage: TRANSDERMAL
     Route: 062

REACTIONS (3)
  - ACCIDENTAL EXPOSURE [None]
  - GROWTH ACCELERATED [None]
  - HYPERTRICHOSIS [None]
